FAERS Safety Report 18305262 (Version 3)
Quarter: 2022Q3

REPORT INFORMATION
  Report Type: Spontaneous
  Country: JP (occurrence: JP)
  Receive Date: 20200924
  Receipt Date: 20220713
  Transmission Date: 20221026
  Serious: No
  Sender: FDA-Public Use
  Company Number: JP-GSKNCCC-CASE-01037430_AE-34336

PATIENT

DRUGS (1)
  1. BENLYSTA [Suspect]
     Active Substance: BELIMUMAB
     Indication: Systemic lupus erythematosus
     Dosage: UNK, WE
     Route: 058

REACTIONS (2)
  - Injection site bruising [Recovered/Resolved]
  - Device infusion issue [Unknown]

NARRATIVE: CASE EVENT DATE: 20200801
